FAERS Safety Report 9588375 (Version 1)
Quarter: 2013Q4

REPORT INFORMATION
  Report Type: Spontaneous
  Country: US (occurrence: US)
  Receive Date: 20131003
  Receipt Date: 20131003
  Transmission Date: 20140711
  Serious: No
  Sender: FDA-Public Use
  Company Number: US-AMGEN-USASP2012063756

PATIENT
  Age: 26 Year
  Sex: Female
  Weight: 99.77 kg

DRUGS (4)
  1. ENBREL [Suspect]
     Indication: RHEUMATOID ARTHRITIS
     Dosage: 50 MG, QWK
     Route: 058
  2. ALBUTEROL                          /00139501/ [Concomitant]
     Dosage: 90 MUG, UNK
  3. EPIPEN [Concomitant]
     Dosage: 0.3 MG, UNK
  4. LORAZEPAM [Concomitant]
     Dosage: 2 MG, UNK

REACTIONS (1)
  - Injection site pain [Unknown]
